FAERS Safety Report 9045563 (Version 1)
Quarter: 2013Q1

REPORT INFORMATION
  Report Type: Spontaneous
  Country: US (occurrence: US)
  Receive Date: 20130131
  Receipt Date: 20130131
  Transmission Date: 20140127
  Serious: Yes (Other)
  Sender: FDA-Public Use
  Company Number: US-AMGEN-USASP2013006231

PATIENT
  Age: 65 Year
  Sex: Female

DRUGS (5)
  1. NEUPOGEN [Suspect]
     Indication: PRODUCT USED FOR UNKNOWN INDICATION
     Dosage: UNK
     Dates: start: 2010, end: 2010
  2. NEULASTA [Suspect]
     Indication: PRODUCT USED FOR UNKNOWN INDICATION
     Dosage: UNK
     Dates: start: 20130112
  3. ADRIAMYCIN                         /00330901/ [Concomitant]
     Indication: BREAST CANCER
     Dosage: UNK
     Dates: start: 20130110
  4. CYTOXAN [Concomitant]
     Indication: BREAST CANCER
     Dosage: UNK
     Dates: start: 20130110
  5. ARIMIDEX [Concomitant]
     Dosage: UNK

REACTIONS (6)
  - Contralateral breast cancer [Unknown]
  - Back pain [Recovered/Resolved]
  - Painful respiration [Unknown]
  - Pain [Unknown]
  - Dyspnoea [Recovered/Resolved]
  - Injection site pain [Recovered/Resolved]
